FAERS Safety Report 5225788-1 (Version None)
Quarter: 2007Q1

REPORT INFORMATION
  Report Type: 
  Country: None (occurrence: None)
  Receive Date: 20070131
  Receipt Date: 20070131
  Transmission Date: 20070707
  Serious: No
  Sender: FDA-Public Use
  Company Number: None

PATIENT
  Age: 61 Year
  Sex: Female
  Weight: 75.2971 kg

DRUGS (1)
  1. REMICADE [Suspect]
     Indication: RHEUMATOID ARTHRITIS
     Dosage: 500 MG Q8WKS IV DRIP
     Route: 041
     Dates: start: 20060309, end: 20061005

REACTIONS (2)
  - BLINDNESS TRANSIENT [None]
  - OPTIC NEURITIS RETROBULBAR [None]
